FAERS Safety Report 22597554 (Version 1)
Quarter: 2023Q2

REPORT INFORMATION
  Report Type: Spontaneous
  Country: US (occurrence: US)
  Receive Date: 20230614
  Receipt Date: 20230614
  Transmission Date: 20230722
  Serious: No
  Sender: FDA-Public Use
  Company Number: US-ENDO PHARMACEUTICALS INC-2023-001257

PATIENT
  Age: 8 Year
  Sex: Female
  Weight: 28.118 kg

DRUGS (4)
  1. SUPPRELIN LA [Suspect]
     Active Substance: HISTRELIN ACETATE
     Indication: Precocious puberty
     Dosage: UNK UNKNOWN, UNKNOWN (FIRST IMPLANT/ONE IMPLANT TO BE INSERTED UNDER THE SKIN EVERY 12 MONTHS)
     Route: 058
     Dates: start: 20221221, end: 20230216
  2. SUPPRELIN LA [Suspect]
     Active Substance: HISTRELIN ACETATE
     Indication: Precocious puberty
     Dosage: UNK UNKNOWN, UNKNOWN (FIRST IMPLANT/ONE IMPLANT TO BE INSERTED UNDER THE SKIN EVERY 12 MONTHS)
     Route: 058
     Dates: start: 20221221, end: 20230216
  3. SUPPRELIN LA [Suspect]
     Active Substance: HISTRELIN ACETATE
     Indication: Hyperpituitarism
  4. SUPPRELIN LA [Suspect]
     Active Substance: HISTRELIN ACETATE
     Indication: Hyperpituitarism

REACTIONS (3)
  - Implant site discharge [Recovered/Resolved]
  - Implant site infection [Recovered/Resolved]
  - Device failure [None]

NARRATIVE: CASE EVENT DATE: 20221201
